FAERS Safety Report 19954488 (Version 1)
Quarter: 2021Q4

REPORT INFORMATION
  Report Type: Report from Study
  Country: CA (occurrence: CA)
  Receive Date: 20211013
  Receipt Date: 20211013
  Transmission Date: 20220303
  Serious: Yes (Hospitalization)
  Sender: FDA-Public Use
  Company Number: CA-JNJFOC-20211014503

PATIENT
  Age: 30 Year
  Sex: Male
  Weight: 83.9 kg

DRUGS (2)
  1. SIMPONI [Suspect]
     Active Substance: GOLIMUMAB
     Indication: Colitis ulcerative
     Route: 058
     Dates: start: 20171018
  2. COVID-19 VACCINE [Concomitant]
     Indication: Immunisation
     Dosage: 2 PFIZER, LAST VACCINE RECEIVED LATE AUGUST

REACTIONS (2)
  - Pneumonia legionella [Not Recovered/Not Resolved]
  - Faeces discoloured [Unknown]

NARRATIVE: CASE EVENT DATE: 20210101
